FAERS Safety Report 4726697-4 (Version None)
Quarter: 2005Q3

REPORT INFORMATION
  Report Type: 
  Country: None (occurrence: None)
  Receive Date: 20050725
  Receipt Date: 20050525
  Transmission Date: 20060218
  Serious: No
  Sender: FDA-Public Use
  Company Number: USA040259740

PATIENT
  Age: 26 Year
  Sex: Male
  Weight: 64 kg

DRUGS (5)
  1. STRATTERA [Suspect]
     Indication: ATTENTION DEFICIT/HYPERACTIVITY DISORDER
     Dosage: 60 MG/DAY
     Dates: start: 20021101, end: 20040101
  2. REMERON (MIRTAZAPINE ORIFARM) [Concomitant]
  3. ZYPREXA [Concomitant]
  4. PROVIGIL [Concomitant]
  5. CLONAZEPAM [Concomitant]

REACTIONS (5)
  - EJACULATION DISORDER [None]
  - ERECTILE DYSFUNCTION [None]
  - FEELING ABNORMAL [None]
  - PROSTATIC PAIN [None]
  - PROSTATITIS [None]
